FAERS Safety Report 21023596 (Version 1)
Quarter: 2022Q2

REPORT INFORMATION
  Report Type: Spontaneous
  Country: JP (occurrence: JP)
  Receive Date: 20220629
  Receipt Date: 20220629
  Transmission Date: 20220721
  Serious: Yes (Life-Threatening, Hospitalization)
  Sender: FDA-Public Use
  Company Number: JP-ELI_LILLY_AND_COMPANY-JP202206012212

PATIENT
  Age: 41 Year
  Sex: Female
  Weight: 42 kg

DRUGS (32)
  1. TADALAFIL [Suspect]
     Active Substance: TADALAFIL
     Indication: Pulmonary arterial hypertension
     Dosage: 40 MG, DAILY
     Route: 048
  2. UPTRAVI [Suspect]
     Active Substance: SELEXIPAG
     Indication: Pulmonary arterial hypertension
     Dosage: 0.2 MG, BID
     Route: 048
     Dates: start: 20170125, end: 20170131
  3. UPTRAVI [Suspect]
     Active Substance: SELEXIPAG
     Dosage: 0.4 MG, BID
     Route: 048
     Dates: start: 20170201, end: 20170207
  4. UPTRAVI [Suspect]
     Active Substance: SELEXIPAG
     Dosage: 0.6 MG, BID
     Route: 048
     Dates: start: 20170208, end: 20170214
  5. UPTRAVI [Suspect]
     Active Substance: SELEXIPAG
     Dosage: 0.8 MG, BID
     Route: 048
     Dates: start: 20170215, end: 20170221
  6. UPTRAVI [Suspect]
     Active Substance: SELEXIPAG
     Dosage: 0.9 MG, BID
     Route: 048
     Dates: start: 20170222, end: 20170228
  7. UPTRAVI [Suspect]
     Active Substance: SELEXIPAG
     Dosage: 1 MG, BID
     Route: 048
     Dates: start: 20170301, end: 20170307
  8. UPTRAVI [Suspect]
     Active Substance: SELEXIPAG
     Dosage: 1.1 MG, BID
     Route: 048
     Dates: start: 20170308, end: 20170314
  9. UPTRAVI [Suspect]
     Active Substance: SELEXIPAG
     Dosage: 1.2 MG, BID
     Route: 048
     Dates: start: 20170315, end: 20170321
  10. UPTRAVI [Suspect]
     Active Substance: SELEXIPAG
     Dosage: 1.3 MG, BID
     Route: 048
     Dates: start: 20170322, end: 20170328
  11. UPTRAVI [Suspect]
     Active Substance: SELEXIPAG
     Dosage: 1.4 MG, BID
     Route: 048
     Dates: start: 20170329, end: 20170418
  12. UPTRAVI [Suspect]
     Active Substance: SELEXIPAG
     Dosage: 1.5 MG, BID
     Route: 048
     Dates: start: 20170419, end: 20170425
  13. UPTRAVI [Suspect]
     Active Substance: SELEXIPAG
     Dosage: 1.6 MG, BID
     Route: 048
     Dates: start: 20170426
  14. MIZORIBINE [Suspect]
     Active Substance: MIZORIBINE
     Indication: Systemic scleroderma
     Dosage: 150 MG, DAILY
     Route: 048
  15. CILOSTAZOL [Suspect]
     Active Substance: CILOSTAZOL
     Indication: Systemic scleroderma
     Dosage: 200 MG, DAILY
     Route: 048
  16. KIKYOTO [Concomitant]
     Indication: Stomatitis
     Dosage: 7.5 G, UNKNOWN
     Route: 065
     Dates: start: 20170719
  17. CEFTRIAXONE SODIUM [Concomitant]
     Active Substance: CEFTRIAXONE SODIUM
     Indication: Pneumonia
     Dosage: UNK, UNKNOWN
     Route: 065
     Dates: start: 20171230, end: 20180110
  18. METHYLPREDNISOLONE SODIUM SUCCINATE [Concomitant]
     Active Substance: METHYLPREDNISOLONE SODIUM SUCCINATE
     Indication: Interstitial lung disease
     Dosage: 1000 MG, UNKNOWN
     Route: 065
     Dates: start: 20171230, end: 20180101
  19. SULFAMETHOXAZOLE\TRIMETHOPRIM [Concomitant]
     Active Substance: SULFAMETHOXAZOLE\TRIMETHOPRIM
     Indication: Prophylaxis
     Dosage: UNK, UNKNOWN
     Route: 065
     Dates: start: 20171230
  20. PREDNISOLONE ACETATE [Concomitant]
     Active Substance: PREDNISOLONE ACETATE
     Indication: Interstitial lung disease
     Dosage: 50 MG, UNKNOWN
     Route: 065
     Dates: start: 20180102, end: 20180104
  21. PREDONINE [Concomitant]
     Active Substance: PREDNISOLONE
     Indication: Interstitial lung disease
     Dosage: 45 MG, UNKNOWN
     Route: 065
     Dates: start: 20180105, end: 20180111
  22. PREDONINE [Concomitant]
     Active Substance: PREDNISOLONE
     Dosage: 10 MG, UNKNOWN
     Route: 065
     Dates: start: 20180112, end: 20180122
  23. ROCEPHIN [Concomitant]
     Active Substance: CEFTRIAXONE SODIUM
     Indication: Pneumonia
     Dosage: 1 G, UNKNOWN
     Dates: start: 20181105, end: 20181112
  24. AMBRISENTAN [Concomitant]
     Active Substance: AMBRISENTAN
     Indication: Pulmonary arterial hypertension
     Dosage: 7.5 MG, UNKNOWN
     Route: 065
  25. AMBRISENTAN [Concomitant]
     Active Substance: AMBRISENTAN
     Dosage: 10 MG, UNKNOWN
     Route: 065
     Dates: start: 201706
  26. HERBESSER [Concomitant]
     Active Substance: DILTIAZEM HYDROCHLORIDE
     Indication: Systemic scleroderma
     Dosage: 100 MG, UNKNOWN
     Route: 065
  27. JUVELA C [Concomitant]
     Indication: Systemic scleroderma
     Dosage: 300 MG, UNKNOWN
     Route: 065
  28. ELDECALCITOL [Concomitant]
     Active Substance: ELDECALCITOL
     Indication: Prophylaxis
     Dosage: 0.75 UG, UNKNOWN
     Route: 065
  29. MIYA-BM [Concomitant]
     Active Substance: CLOSTRIDIUM BUTYRICUM SPORES STRAIN M-55
     Indication: Chronic gastritis
     Dosage: 3 DOSAGE FORM, UNKNOWN
     Route: 065
     Dates: start: 20170607
  30. SYMBICORT [Concomitant]
     Active Substance: BUDESONIDE\FORMOTEROL FUMARATE DIHYDRATE
     Indication: Asthma
     Dosage: UNK, UNKNOWN
     Route: 065
  31. PRANLUKAST [Concomitant]
     Active Substance: PRANLUKAST
     Indication: Asthma
     Dosage: 450 MG, UNKNOWN
     Route: 065
  32. RAPIACTA [Concomitant]
     Active Substance: PERAMIVIR
     Indication: Influenza
     Dosage: 300 MG, UNKNOWN
     Route: 065
     Dates: start: 20171230, end: 20171230

REACTIONS (11)
  - Interstitial lung disease [Recovered/Resolved with Sequelae]
  - Pneumonia [Recovered/Resolved with Sequelae]
  - Pneumonia [Recovered/Resolved]
  - Influenza [Recovered/Resolved]
  - Brain natriuretic peptide increased [Not Recovered/Not Resolved]
  - Stomatitis [Not Recovered/Not Resolved]
  - Epistaxis [Recovering/Resolving]
  - Hot flush [Recovering/Resolving]
  - Oedema peripheral [Recovering/Resolving]
  - Malaise [Recovered/Resolved]
  - Flushing [Recovering/Resolving]

NARRATIVE: CASE EVENT DATE: 20170222
